FAERS Safety Report 9540234 (Version 2)
Quarter: 2013Q4

REPORT INFORMATION
  Report Type: Spontaneous
  Country: JP (occurrence: JP)
  Receive Date: 20130920
  Receipt Date: 20131011
  Transmission Date: 20140711
  Serious: Yes (Hospitalization, Other)
  Sender: FDA-Public Use
  Company Number: JP-ABBVIE-13P-087-1149470-00

PATIENT
  Age: 77 Year
  Sex: Male
  Weight: 59 kg

DRUGS (6)
  1. LEUPLIN SR FOR INJECTION KIT 11.25 [Suspect]
     Indication: PRODUCT USED FOR UNKNOWN INDICATION
     Dosage: REGIMEN#1
     Route: 058
  2. LEUPLIN SR FOR INJECTION KIT 11.25 [Suspect]
     Dosage: REGIMEN#2
     Route: 058
     Dates: start: 20090527
  3. CASODEX [Suspect]
     Indication: PRODUCT USED FOR UNKNOWN INDICATION
     Route: 048
  4. UNISIA [Concomitant]
     Indication: PRODUCT USED FOR UNKNOWN INDICATION
     Dates: start: 201204
  5. GASMOTIN [Concomitant]
     Indication: PRODUCT USED FOR UNKNOWN INDICATION
     Dates: start: 201204
  6. LIVALO [Concomitant]
     Indication: PRODUCT USED FOR UNKNOWN INDICATION
     Dates: start: 201204, end: 20130815

REACTIONS (1)
  - Interstitial lung disease [Not Recovered/Not Resolved]
